FAERS Safety Report 9739656 (Version 3)
Quarter: 2014Q1

REPORT INFORMATION
  Report Type: Spontaneous
  Country: US (occurrence: US)
  Receive Date: 20131209
  Receipt Date: 20140116
  Transmission Date: 20141002
  Serious: No
  Sender: FDA-Public Use
  Company Number: US-009507513-1312USA001200

PATIENT
  Age: 65 Year
  Sex: Male
  Weight: 72.56 kg

DRUGS (7)
  1. VICTRELIS [Suspect]
     Indication: HEPATITIS C
     Dosage: TOOK FOUR CAPSULES BY MOUTH THREE TIMES A DAY 7-9 HOURS APART WITH A SLIGHT SNACK
     Route: 048
     Dates: start: 20131118, end: 20131218
  2. PEGINTRON [Suspect]
     Indication: HEPATITIS C
     Dosage: 0.5 ML, QW
     Route: 058
     Dates: start: 20131019
  3. REBETOL [Suspect]
     Indication: HEPATITIS C
     Dosage: 1 DF, BID
     Route: 048
     Dates: start: 20131019
  4. REBETOL [Suspect]
     Dosage: 200 MG AM, 400 MG PM
     Route: 048
  5. LORATADINE [Concomitant]
     Dosage: LORATADINE D-12
     Route: 048
  6. MIRTAZAPINE [Concomitant]
     Route: 048
  7. MELOXICAM [Concomitant]
     Dosage: 1 DF, QD

REACTIONS (6)
  - Red blood cell count decreased [Recovering/Resolving]
  - Fatigue [Recovering/Resolving]
  - Anaemia [Unknown]
  - Haemoglobin decreased [Unknown]
  - Weight decreased [Unknown]
  - Dysgeusia [Unknown]
